FAERS Safety Report 9896578 (Version 2)
Quarter: 2014Q1

REPORT INFORMATION
  Report Type: Spontaneous
  Country: US (occurrence: US)
  Receive Date: 20140213
  Receipt Date: 20140213
  Transmission Date: 20141002
  Serious: No
  Sender: FDA-Public Use
  Company Number: US-BRISTOL-MYERS SQUIBB COMPANY-19124148

PATIENT
  Age: 52 Year
  Sex: Female
  Weight: 64.85 kg

DRUGS (4)
  1. ABATACEPT SUBQ INJECTION 125MG/ML [Suspect]
     Dosage: LAST INJ:13JUL2013
     Route: 058
  2. CORTISONE CREAM [Concomitant]
  3. PREDNISONE [Concomitant]
  4. IBUPROFEN [Concomitant]

REACTIONS (2)
  - Dermatitis contact [Recovered/Resolved]
  - Pruritus [Not Recovered/Not Resolved]
